FAERS Safety Report 10244705 (Version 1)
Quarter: 2014Q2

REPORT INFORMATION
  Report Type: Spontaneous
  Country: CA (occurrence: CA)
  Receive Date: 20140618
  Receipt Date: 20140618
  Transmission Date: 20141212
  Serious: Yes (Hospitalization)
  Sender: FDA-Public Use
  Company Number: CA-AMGEN-CANSP2014044458

PATIENT
  Age: 75 Year
  Sex: Female

DRUGS (6)
  1. PROLIA [Suspect]
     Indication: OSTEOPOROSIS POSTMENOPAUSAL
     Dosage: 60 MG, Q6MO
     Route: 058
     Dates: start: 20111017
  2. VITAMIN D                          /00107901/ [Concomitant]
     Dosage: 400 IU, UNK
  3. COVERSYL                           /00790702/ [Concomitant]
  4. TIAZAC                             /00489702/ [Concomitant]
     Dosage: 180 MG, UNK
  5. MULTIVITAMINS [Concomitant]
  6. IRON [Concomitant]
     Dosage: 300 MG, UNK

REACTIONS (5)
  - Renal cancer [Unknown]
  - Blood pressure inadequately controlled [Unknown]
  - Blood parathyroid hormone increased [Unknown]
  - Weight decreased [Unknown]
  - Back pain [Unknown]
